FAERS Safety Report 9369451 (Version 1)
Quarter: 2013Q2

REPORT INFORMATION
  Report Type: Spontaneous
  Country: US (occurrence: None)
  Receive Date: 20130625
  Receipt Date: 20130625
  Transmission Date: 20140414
  Serious: Yes (Hospitalization)
  Sender: FDA-Public Use
  Company Number: None

PATIENT
  Age: 36 None
  Sex: Male
  Weight: 90.72 kg

DRUGS (2)
  1. Z PACK [Suspect]
     Indication: SINUSITIS
     Dates: start: 200908
  2. MED TRONIKS PACE MAKER [Concomitant]

REACTIONS (2)
  - Cardiac arrest [None]
  - Loss of consciousness [None]
